FAERS Safety Report 9887353 (Version 1)
Quarter: 2014Q1

REPORT INFORMATION
  Report Type: Other
  Country: GT (occurrence: GT)
  Receive Date: 20140211
  Receipt Date: 20140211
  Transmission Date: 20141002
  Serious: Yes (Death, Hospitalization, Other)
  Sender: FDA-Public Use
  Company Number: GT-BRISTOL-MYERS SQUIBB COMPANY-20152815

PATIENT
  Age: 27 Year
  Sex: Female
  Weight: 43 kg

DRUGS (1)
  1. METFORMIN HCL [Suspect]
     Indication: TYPE 2 DIABETES MELLITUS

REACTIONS (6)
  - Cardiac arrest [Fatal]
  - Gestational hypertension [Unknown]
  - Werner^s syndrome [Unknown]
  - Oligohydramnios [Unknown]
  - Pregnancy [Unknown]
  - Live birth [Unknown]
